FAERS Safety Report 6596587-3 (Version None)
Quarter: 2010Q1

REPORT INFORMATION
  Report Type: 
  Country: None (occurrence: None)
  Receive Date: 20100223
  Receipt Date: 20100209
  Transmission Date: 20100710
  Serious: Yes (Disabling, Other)
  Sender: FDA-Public Use
  Company Number: US-CELGENEUS-163-21880-09120163

PATIENT
  Sex: Male

DRUGS (5)
  1. REVLIMID [Suspect]
     Indication: MULTIPLE MYELOMA
     Route: 048
     Dates: start: 20090501, end: 20091001
  2. REVLIMID [Suspect]
     Route: 048
     Dates: start: 20090401
  3. REVLIMID [Suspect]
     Route: 048
     Dates: start: 20080901
  4. TACROLIMUS [Concomitant]
     Indication: TRANSPLANT
     Route: 065
  5. SIROLIMUS [Concomitant]
     Indication: TRANSPLANT
     Route: 065

REACTIONS (2)
  - GRAFT VERSUS HOST DISEASE [None]
  - MULTIPLE MYELOMA [None]
